FAERS Safety Report 8623130-7 (Version None)
Quarter: 2012Q3

REPORT INFORMATION
  Report Type: 
  Country: None (occurrence: None)
  Receive Date: 20120827
  Receipt Date: 20120821
  Transmission Date: 20120928
  Serious: Yes (Death, Hospitalization, Disabling)
  Sender: FDA-Public Use
  Company Number: JP-JNJFOC-20120714905

PATIENT
  Sex: Female
  Weight: 40 kg

DRUGS (74)
  1. SIMPONI [Suspect]
     Route: 058
     Dates: start: 20120222
  2. METHOTREXATE [Concomitant]
     Indication: RHEUMATOID ARTHRITIS
     Dates: start: 20100216
  3. BREDININ [Concomitant]
     Indication: RHEUMATOID ARTHRITIS
     Route: 048
     Dates: start: 20090811
  4. LANSOPRAZOLE [Concomitant]
     Route: 048
     Dates: start: 20120621, end: 20120701
  5. VERAPAMIL HCL [Concomitant]
     Route: 048
     Dates: start: 20120618, end: 20120618
  6. FUROSEMIDE [Concomitant]
     Route: 041
     Dates: start: 20120703, end: 20120703
  7. HEPARIN SODIUM [Concomitant]
     Route: 041
     Dates: start: 20120703, end: 20120712
  8. SEISHOKU [Concomitant]
     Route: 041
     Dates: start: 20120701, end: 20120707
  9. SIMPONI [Suspect]
     Indication: RHEUMATOID ARTHRITIS
     Route: 058
     Dates: start: 20120516
  10. SIMPONI [Suspect]
     Route: 058
     Dates: end: 20120629
  11. CELEBREX [Concomitant]
     Route: 048
     Dates: start: 20120621, end: 20120701
  12. PROPOFOL [Concomitant]
     Route: 041
     Dates: start: 20120710, end: 20120712
  13. SEISHOKU [Concomitant]
     Route: 041
     Dates: start: 20120711, end: 20120711
  14. DIGOXIN [Concomitant]
     Route: 041
     Dates: start: 20120705, end: 20120710
  15. CLINDAMYCIN [Concomitant]
     Route: 041
     Dates: start: 20120708, end: 20120709
  16. BIO-THREE [Concomitant]
     Route: 048
     Dates: start: 20120622, end: 20120727
  17. PREDNISOLONE [Concomitant]
     Route: 048
     Dates: start: 20120621, end: 20120701
  18. WARFARIN [Concomitant]
     Route: 048
     Dates: start: 20120620, end: 20120624
  19. FUROSEMIDE [Concomitant]
     Route: 041
     Dates: start: 20120701, end: 20120701
  20. DILTIAZEM HYDROCHLORIDE [Concomitant]
     Route: 041
     Dates: start: 20120705, end: 20120712
  21. SEISHOKU [Concomitant]
     Route: 041
     Dates: start: 20120710, end: 20120710
  22. POTASSIUM CHLORIDE [Concomitant]
     Route: 041
     Dates: start: 20120706, end: 20120707
  23. CEFTAZIDIME SODIUM [Concomitant]
     Route: 041
     Dates: start: 20120708, end: 20120710
  24. SIMPONI [Suspect]
     Route: 058
     Dates: start: 20120615
  25. REBAMIPIDE [Concomitant]
     Route: 048
     Dates: start: 20120621, end: 20120701
  26. PREDNISOLONE [Concomitant]
     Route: 041
     Dates: start: 20120703, end: 20120712
  27. PROPOFOL [Concomitant]
     Route: 041
     Dates: start: 20120709, end: 20120709
  28. MANNITOL [Concomitant]
     Route: 041
     Dates: start: 20120703, end: 20120712
  29. ISOTONIC SODIUM CHLORIDE SOLUTION [Concomitant]
     Route: 041
     Dates: start: 20120705, end: 20120712
  30. ALBUMIN (HUMAN) [Concomitant]
     Route: 041
     Dates: start: 20120702, end: 20120704
  31. LASIX [Concomitant]
     Route: 041
     Dates: start: 20120711, end: 20120712
  32. SIMPONI [Suspect]
     Route: 058
     Dates: start: 20120321
  33. SLOW-K [Concomitant]
     Route: 048
     Dates: start: 20120620, end: 20120627
  34. FUROSEMIDE [Concomitant]
     Route: 048
     Dates: start: 20120620, end: 20120627
  35. BISOPROLOL FUMARATE [Concomitant]
     Route: 048
     Dates: start: 20120621, end: 20120701
  36. VERAPAMIL HCL [Concomitant]
     Route: 048
     Dates: start: 20120620, end: 20120627
  37. LOXONIN [Concomitant]
     Route: 062
     Dates: start: 20120625, end: 20120625
  38. GLUCOSE [Concomitant]
     Route: 041
     Dates: start: 20120711, end: 20120711
  39. PREDNISOLONE [Concomitant]
     Route: 041
     Dates: start: 20120701, end: 20120702
  40. ISOTONIC SODIUM CHLORIDE SOLUTION [Concomitant]
     Route: 041
     Dates: start: 20120701, end: 20120712
  41. VERAPAMIL HCL [Concomitant]
     Route: 041
     Dates: start: 20120704, end: 20120705
  42. OMEGACIN [Concomitant]
     Route: 041
     Dates: start: 20120711, end: 20120711
  43. SUCRALFATE [Concomitant]
     Route: 048
     Dates: start: 20120622, end: 20120701
  44. PANTOSIN [Concomitant]
     Route: 048
     Dates: start: 20120624, end: 20120724
  45. LEVEMIR [Concomitant]
     Route: 058
     Dates: start: 20120628, end: 20120628
  46. UNKNOWN MEDICATION [Concomitant]
     Route: 041
     Dates: start: 20120701, end: 20120712
  47. ACETATED RINGER [Concomitant]
     Route: 041
     Dates: start: 20120701, end: 20120708
  48. SEISHOKU [Concomitant]
     Route: 041
     Dates: start: 20120712, end: 20120712
  49. OMEPRAZOLE [Concomitant]
     Route: 041
     Dates: start: 20120701, end: 20120712
  50. ISOTONIC SODIUM CHLORIDE SOLUTION [Concomitant]
     Route: 041
     Dates: start: 20120701, end: 20120702
  51. ISOTONIC SODIUM CHLORIDE SOLUTION [Concomitant]
     Route: 041
     Dates: start: 20120711, end: 20120712
  52. ISOTONIC SODIUM CHLORIDE SOLUTION [Concomitant]
     Route: 041
     Dates: start: 20120710, end: 20120710
  53. ALBUMIN (HUMAN) [Concomitant]
     Route: 041
     Dates: start: 20120709, end: 20120711
  54. POTASSIUM CHLORIDE [Concomitant]
     Route: 041
     Dates: start: 20120705, end: 20120705
  55. VERAPAMIL HCL [Concomitant]
     Route: 041
     Dates: start: 20120702, end: 20120703
  56. OMEGACIN [Concomitant]
     Route: 041
     Dates: start: 20120710, end: 20120710
  57. LEVOFLOXACIN [Concomitant]
     Route: 048
     Dates: start: 20120622, end: 20120625
  58. RHYTHMY [Concomitant]
     Route: 048
     Dates: start: 20120623, end: 20120623
  59. GLUCOSE [Concomitant]
     Route: 041
     Dates: start: 20120701, end: 20120702
  60. GLUCOSE [Concomitant]
     Route: 041
     Dates: start: 20120703, end: 20120703
  61. GLUCOSE [Concomitant]
     Route: 041
     Dates: start: 20120704, end: 20120705
  62. FULCALIQ 1 [Concomitant]
     Route: 041
     Dates: start: 20120701, end: 20120703
  63. PROPOFOL [Concomitant]
     Route: 041
     Dates: start: 20120702, end: 20120708
  64. CLINDAMYCIN [Concomitant]
     Route: 041
     Dates: start: 20120710, end: 20120710
  65. LASIX [Concomitant]
     Route: 041
     Dates: start: 20120703, end: 20120710
  66. FULCALIQ 2 [Concomitant]
     Route: 041
     Dates: start: 20120703, end: 20120712
  67. SIMPONI [Suspect]
     Route: 058
     Dates: start: 20120418
  68. ELASPOL [Concomitant]
     Route: 065
     Dates: start: 20120701, end: 20120710
  69. GLUCOSE [Concomitant]
     Route: 041
     Dates: start: 20120706, end: 20120710
  70. MEROPENEM [Concomitant]
     Route: 041
     Dates: start: 20120702, end: 20120707
  71. SOLU-MEDROL [Concomitant]
     Route: 041
     Dates: start: 20120701, end: 20120702
  72. SOLULACT [Concomitant]
     Route: 041
     Dates: start: 20120701, end: 20120711
  73. ISOTONIC SODIUM CHLORIDE SOLUTION [Concomitant]
     Route: 041
     Dates: start: 20120708, end: 20120709
  74. OMEGACIN [Concomitant]
     Route: 041
     Dates: start: 20120712, end: 20120712

REACTIONS (10)
  - PNEUMONIA [None]
  - ENDOCARDITIS [None]
  - MALNUTRITION [None]
  - PNEUMOTHORAX [None]
  - FALL [None]
  - PNEUMONIA ASPIRATION [None]
  - CARDIAC FAILURE CONGESTIVE [None]
  - ATRIAL FIBRILLATION [None]
  - ARRHYTHMIA [None]
  - SEPSIS [None]
